FAERS Safety Report 7183594-5 (Version None)
Quarter: 2010Q4

REPORT INFORMATION
  Report Type: 
  Country: None (occurrence: None)
  Receive Date: 20101210
  Receipt Date: 20101124
  Transmission Date: 20110411
  Serious: Yes (Hospitalization)
  Sender: FDA-Public Use
  Company Number: 013832

PATIENT
  Sex: Female

DRUGS (5)
  1. CIMZIA [Suspect]
     Indication: CROHN'S DISEASE
     Dosage: (UNSPECIFIED SUBCUTANEOUS)
     Route: 058
     Dates: start: 20100115
  2. FLAGYL [Concomitant]
  3. LEVAQUIN [Concomitant]
  4. PREDNISONE [Concomitant]
  5. CIPROFLOXACIN /00697203/ [Concomitant]

REACTIONS (9)
  - ABDOMINAL PAIN LOWER [None]
  - ABSCESS [None]
  - CONDITION AGGRAVATED [None]
  - CROHN'S DISEASE [None]
  - FATIGUE [None]
  - INTESTINAL MASS [None]
  - INTESTINAL OBSTRUCTION [None]
  - POST PROCEDURAL INFECTION [None]
  - SLEEP DISORDER [None]
